FAERS Safety Report 6661629-3 (Version None)
Quarter: 2010Q1

REPORT INFORMATION
  Report Type: 
  Country: None (occurrence: None)
  Receive Date: 20100331
  Receipt Date: 20090312
  Transmission Date: 20100710
  Serious: Yes (Hospitalization, Other)
  Sender: FDA-Public Use
  Company Number: US-BRISTOL-MYERS SQUIBB COMPANY-14534242

PATIENT
  Age: 62 Year
  Sex: Male

DRUGS (4)
  1. ERBITUX [Suspect]
     Indication: HEAD AND NECK CANCER
     Dosage: RECEIVED FIRST INFUSION
     Route: 042
     Dates: start: 20090227, end: 20090227
  2. TYLENOL-500 [Concomitant]
     Indication: PREMEDICATION
  3. BENADRYL [Concomitant]
     Indication: PREMEDICATION
  4. DEXAMETHASONE [Concomitant]
     Indication: PREMEDICATION
     Route: 042

REACTIONS (3)
  - DYSARTHRIA [None]
  - INFUSION RELATED REACTION [None]
  - RESPIRATORY ARREST [None]
